FAERS Safety Report 4604986-1 (Version None)
Quarter: 2005Q2

REPORT INFORMATION
  Report Type: 
  Country: None (occurrence: None)
  Receive Date: 20050217
  Receipt Date: 20041116
  Transmission Date: 20051028
  Serious: Yes (Other)
  Sender: FDA-Public Use
  Company Number: S04-USA-06693-01

PATIENT
  Age: 75 Year
  Sex: Female

DRUGS (11)
  1. NAMENDA [Suspect]
     Indication: DEMENTIA ALZHEIMER'S TYPE
     Dosage: 10 MG BID PO
     Route: 048
     Dates: start: 20040501, end: 20041001
  2. NAMENDA [Suspect]
     Indication: DEMENTIA ALZHEIMER'S TYPE
     Dosage: 10 MG QD PO
     Route: 048
     Dates: start: 20041001
  3. NAMENDA [Suspect]
     Indication: DEMENTIA ALZHEIMER'S TYPE
     Dosage: 5 MG QD PO
     Route: 048
     Dates: start: 20040501, end: 20040501
  4. NAMENDA [Suspect]
     Indication: DEMENTIA ALZHEIMER'S TYPE
     Dosage: 5 MG BID PO
     Route: 048
     Dates: start: 20040501, end: 20040501
  5. NAMENDA [Suspect]
     Indication: DEMENTIA ALZHEIMER'S TYPE
     Dosage: 15 MG QD PO
     Route: 048
     Dates: start: 20040501, end: 20040501
  6. ARICEPT [Concomitant]
  7. ANTI-ANXIETY MEDICATION (NOS) [Concomitant]
  8. MACRODANTIN [Concomitant]
  9. DETROL LA [Concomitant]
  10. PRILOSEC [Concomitant]
  11. CRESTOR [Concomitant]

REACTIONS (6)
  - ALOPECIA [None]
  - DIZZINESS [None]
  - FALL [None]
  - FOOT FRACTURE [None]
  - INSOMNIA [None]
  - URINARY TRACT INFECTION [None]
